FAERS Safety Report 4880950-2 (Version None)
Quarter: 2005Q4

REPORT INFORMATION
  Report Type: 
  Country: None (occurrence: None)
  Receive Date: 20051223
  Receipt Date: 20051101
  Transmission Date: 20060501
  Serious: No
  Sender: FDA-Public Use
  Company Number: 05P-163-0316095-00

PATIENT
  Age: 68 Year
  Sex: Female
  Weight: 60.3284 kg

DRUGS (5)
  1. HUMIRA [Suspect]
     Indication: RHEUMATOID ARTHRITIS
     Dosage: 40 MG, 1 IN 2 WK, SUBCUTANEOUS
     Route: 058
     Dates: start: 20030222
  2. METHOTREXATE SODIUM [Concomitant]
  3. FOLTEX [Concomitant]
  4. ESTROGENS CONJUGATED [Concomitant]
  5. METHYLPREDNISOLONE [Concomitant]

REACTIONS (5)
  - COUGH [None]
  - INAPPROPRIATE SCHEDULE OF DRUG ADMINISTRATION [None]
  - NASAL DRYNESS [None]
  - RESPIRATORY TRACT CONGESTION [None]
  - TINNITUS [None]
